FAERS Safety Report 25522805 (Version 1)
Quarter: 2025Q3

REPORT INFORMATION
  Report Type: Spontaneous
  Country: JP (occurrence: JP)
  Receive Date: 20250707
  Receipt Date: 20250707
  Transmission Date: 20251021
  Serious: Yes (Hospitalization, Other)
  Sender: GLAXOSMITHKLINE
  Company Number: JP-GSK-JP2025JPN082547

PATIENT
  Sex: Male

DRUGS (3)
  1. EPIVIR [Suspect]
     Active Substance: LAMIVUDINE
     Indication: HIV infection
  2. STAVUDINE [Concomitant]
     Active Substance: STAVUDINE
     Indication: HIV infection
  3. NELFINAVIR MESYLATE [Concomitant]
     Active Substance: NELFINAVIR MESYLATE
     Indication: HIV infection

REACTIONS (4)
  - Latent autoimmune diabetes in adults [Unknown]
  - Diabetes mellitus [Unknown]
  - Autoimmune thyroiditis [Unknown]
  - Blood creatine phosphokinase increased [Unknown]
